FAERS Safety Report 15996456 (Version 3)
Quarter: 2022Q2

REPORT INFORMATION
  Report Type: Spontaneous
  Country: NL (occurrence: NL)
  Receive Date: 20190222
  Receipt Date: 20220414
  Transmission Date: 20220721
  Serious: Yes (Hospitalization, Other)
  Sender: FDA-Public Use
  Company Number: PHHY2019NL040054

PATIENT
  Age: 61 Year
  Sex: Female

DRUGS (9)
  1. HYDROCHLOROTHIAZIDE [Interacting]
     Active Substance: HYDROCHLOROTHIAZIDE
     Indication: Product used for unknown indication
     Dosage: 12.5 MG
     Route: 065
  2. CAPTOPRIL [Interacting]
     Active Substance: CAPTOPRIL
     Indication: Product used for unknown indication
     Dosage: 6.25 MG IN THE AFTERNOON AND 6.25 MG IN THE EVENING
     Route: 065
  3. BISOPROLOL [Interacting]
     Active Substance: BISOPROLOL
     Indication: Product used for unknown indication
     Dosage: 5 MG
     Route: 065
  4. CANDESARTAN [Interacting]
     Active Substance: CANDESARTAN
     Indication: Product used for unknown indication
     Dosage: 8 MG
     Route: 065
  5. TRANYLCYPROMINE SULFATE [Interacting]
     Active Substance: TRANYLCYPROMINE SULFATE
     Indication: Product used for unknown indication
     Dosage: INCREASED IN 3 WEEKS UP TO 70 MG
     Route: 065
  6. TRANYLCYPROMINE SULFATE [Interacting]
     Active Substance: TRANYLCYPROMINE SULFATE
     Dosage: 10 MG, Q12H
     Route: 065
  7. METOCLOPRAMIDE [Interacting]
     Active Substance: METOCLOPRAMIDE
     Indication: Orthostatic hypotension
     Dosage: 10 MG, Q8H
     Route: 065
  8. IPRATROPIUM [Concomitant]
     Active Substance: IPRATROPIUM
     Indication: Product used for unknown indication
     Dosage: UNK
     Route: 065
  9. PHENPROCOUMON [Concomitant]
     Active Substance: PHENPROCOUMON
     Indication: Product used for unknown indication
     Dosage: ACCORDING TO PRESCRIPTION
     Route: 065

REACTIONS (7)
  - Orthostatic hypotension [Recovering/Resolving]
  - Hypertensive crisis [Recovering/Resolving]
  - Potentiating drug interaction [Unknown]
  - Food interaction [Recovered/Resolved]
  - Drug ineffective [Unknown]
  - Depression [Unknown]
  - Prescribed overdose [Recovering/Resolving]
